FAERS Safety Report 6209480-2 (Version None)
Quarter: 2009Q2

REPORT INFORMATION
  Report Type: 
  Country: None (occurrence: None)
  Receive Date: 20090601
  Receipt Date: 20081015
  Transmission Date: 20091009
  Serious: No
  Sender: FDA-Public Use
  Company Number: A0752919A

PATIENT
  Age: 6 Month
  Sex: Male
  Weight: 7.7 kg

DRUGS (2)
  1. AMOXICILLIN AND CLAVULANATE POTASSIUM [Suspect]
     Indication: EAR INFECTION
     Dosage: 3ML TWICE PER DAY
     Route: 048
     Dates: start: 20081008
  2. MYLICON [Concomitant]

REACTIONS (3)
  - DRUG INEFFECTIVE [None]
  - FREQUENT BOWEL MOVEMENTS [None]
  - PRODUCT QUALITY ISSUE [None]
